FAERS Safety Report 7707167-8 (Version None)
Quarter: 2011Q3

REPORT INFORMATION
  Report Type: 
  Country: None (occurrence: None)
  Receive Date: 20110824
  Receipt Date: 20110128
  Transmission Date: 20111222
  Serious: No
  Sender: FDA-Public Use
  Company Number: US-ALLERGAN-1100205US

PATIENT
  Age: 54 Year
  Sex: Female

DRUGS (3)
  1. OZURDEX [Suspect]
     Indication: UVEITIS
  2. DUREZOL [Concomitant]
     Indication: UVEITIS
     Dosage: 1 GTT, TID
     Route: 047
     Dates: start: 20100301
  3. OZURDEX [Suspect]
     Indication: CYSTOID MACULAR OEDEMA
     Dosage: 0.7 MG, SINGLE
     Route: 031
     Dates: start: 20101124

REACTIONS (2)
  - IRIS DISORDER [None]
  - DEVICE DISLOCATION [None]
